FAERS Safety Report 10005999 (Version 1)
Quarter: 2014Q1

REPORT INFORMATION
  Report Type: Spontaneous
  Country: FR (occurrence: FR)
  Receive Date: 20140313
  Receipt Date: 20140313
  Transmission Date: 20141002
  Serious: Yes (Hospitalization)
  Sender: FDA-Public Use
  Company Number: FR-UCBSA-114181

PATIENT
  Age: 28 Year
  Sex: Female

DRUGS (3)
  1. KEPPRA [Suspect]
     Indication: EPILEPSY
     Dosage: 500MG STRENGTH (1-0-1)
     Route: 048
     Dates: start: 201006
  2. EPITOMAX [Suspect]
     Indication: EPILEPSY
     Dosage: 50MG DOSAGE STRENGTH (1-0-1)
     Route: 048
     Dates: start: 201104
  3. URBANYL [Suspect]
     Dosage: 10MG DOSAGE STRENGTH ON REQUEST 1/2 TABLET TWO TIMES A DAY
     Route: 048

REACTIONS (2)
  - Pyrexia [Recovered/Resolved]
  - Lymphadenitis [Not Recovered/Not Resolved]
